FAERS Safety Report 9943566 (Version 2)
Quarter: 2014Q1

REPORT INFORMATION
  Report Type: Report from Study
  Country: US (occurrence: US)
  Receive Date: 20140303
  Receipt Date: 20140303
  Transmission Date: 20141002
  Serious: No
  Sender: FDA-Public Use
  Company Number: US-ABBVIE-12P-163-0954133-00

PATIENT
  Sex: Male

DRUGS (15)
  1. HUMIRA [Suspect]
     Indication: CROHN^S DISEASE
     Route: 058
     Dates: start: 2011
  2. HUMIRA [Suspect]
     Route: 058
  3. ISOSORBIDE [Concomitant]
     Indication: HYPERTENSION
     Dosage: 60MG DAILY
  4. METOPROLOL [Concomitant]
     Indication: HYPERTENSION
     Dosage: 200MG, 2 TABS DAILY
  5. AMLODIPINE BENAZEPRIL [Concomitant]
     Indication: HYPERTENSION
     Dosage: 10/20MG DAILY
  6. HYDROCHLOROTHIAZIDE [Concomitant]
     Indication: HYPERTENSION
     Dosage: 25MG DAILY
  7. NIFEDICAL XL [Concomitant]
     Indication: HYPERTENSION
     Dosage: 60MG DAILY
  8. CRESTOR [Concomitant]
     Indication: BLOOD CHOLESTEROL INCREASED
     Dosage: 20MG DAILY
  9. ASACOL [Concomitant]
     Indication: CROHN^S DISEASE
  10. BABY ASPIRIN [Concomitant]
     Indication: PRODUCT USED FOR UNKNOWN INDICATION
     Dosage: 81 MG DAILY
  11. MULTIVITAMIN [Concomitant]
     Indication: PRODUCT USED FOR UNKNOWN INDICATION
     Dosage: DAILY
  12. TAMSULOSIN [Concomitant]
     Indication: PROSTATIC DISORDER
     Dosage: 0.4 MG DAILY
  13. LIDODERM [Concomitant]
     Indication: MUSCULOSKELETAL PAIN
  14. LIDODERM [Concomitant]
     Indication: BACK PAIN
  15. HYDROCODONE [Concomitant]
     Indication: PAIN
     Dosage: 7.5/750MG AS NEEDED

REACTIONS (3)
  - Benign neoplasm [Unknown]
  - Rash [Recovered/Resolved]
  - Rash [Unknown]
